FAERS Safety Report 8111960-X (Version None)
Quarter: 2012Q1

REPORT INFORMATION
  Report Type: 
  Country: None (occurrence: None)
  Receive Date: 20120203
  Receipt Date: 20110916
  Transmission Date: 20120608
  Serious: No
  Sender: FDA-Public Use
  Company Number: US-GLAXOSMITHKLINE-A0945519A

PATIENT
  Age: 41 Year
  Sex: Female

DRUGS (4)
  1. ARIXTRA [Suspect]
     Indication: DEEP VEIN THROMBOSIS
     Dosage: 2.5MG PER DAY
     Route: 058
     Dates: start: 20100916
  2. SLEEPING MEDICATION [Concomitant]
     Indication: SLEEP DISORDER
  3. NERVE MEDICATION [Concomitant]
     Indication: NERVOUSNESS
  4. RADIATION THERAPY [Concomitant]
     Indication: BRAIN NEOPLASM
     Dates: end: 20110901

REACTIONS (2)
  - INJECTION SITE REACTION [None]
  - INJECTION SITE DISCOLOURATION [None]
